FAERS Safety Report 7095483-5 (Version None)
Quarter: 2010Q4

REPORT INFORMATION
  Report Type: 
  Country: None (occurrence: None)
  Receive Date: 20101102
  Receipt Date: 20101019
  Transmission Date: 20110411
  Serious: Yes (Hospitalization)
  Sender: FDA-Public Use
  Company Number: 009513

PATIENT
  Sex: Female
  Weight: 93 kg

DRUGS (34)
  1. CIMZIA [Suspect]
     Indication: RHEUMATOID ARTHRITIS
     Dosage: (400 MG 1X/2 WEEKS SUBCUTANEOUS), (200 MG 1X/2 WEEKS SUBCUTANEOUS)
     Route: 058
     Dates: start: 20050913, end: 20071119
  2. CIMZIA [Suspect]
     Indication: RHEUMATOID ARTHRITIS
     Dosage: (400 MG 1X/2 WEEKS SUBCUTANEOUS), (200 MG 1X/2 WEEKS SUBCUTANEOUS)
     Route: 058
     Dates: start: 20071203, end: 20100323
  3. CIMZIA [Suspect]
     Indication: RHEUMATOID ARTHRITIS
     Dosage: (400 MG 1X/2 WEEKS SUBCUTANEOUS), (200 MG 1X/2 WEEKS SUBCUTANEOUS)
     Route: 058
     Dates: start: 20100503
  4. METHOTREXATE [Concomitant]
  5. FOLIC ACID [Concomitant]
  6. MELOXICAM [Concomitant]
  7. METHYLPREDNISOLON /00049601/ [Concomitant]
  8. TRIAMCINOLON /00031901/ [Concomitant]
  9. LIDOCAINE HYDROCHLORIDE [Concomitant]
  10. DICLOBERL [Concomitant]
  11. DICLAC /00372302/ [Concomitant]
  12. CALCIUM [Concomitant]
  13. COLECALCIFEROL [Concomitant]
  14. MAGNE-B6 ORAL [Concomitant]
  15. DIAZEPAM [Concomitant]
  16. MILDRONAT [Concomitant]
  17. CIPROFLOXACIN [Concomitant]
  18. MONOPRIL /00915301/ [Concomitant]
  19. CAPTOPRIL [Concomitant]
  20. METOPROLOL SUCCINATE [Concomitant]
  21. POTASSIUM CITRATE [Concomitant]
  22. PARACETAMOL [Concomitant]
  23. AMOXICILLIN [Concomitant]
  24. CLAVULANATE POTASSIUM [Concomitant]
  25. TEARS NATURALE /00635701/ [Concomitant]
  26. TOBREX /00304201/ [Concomitant]
  27. AMOXICLAV /01000301/ [Concomitant]
  28. XYLOMETAZOLINE HYDROCHLORIDE [Concomitant]
  29. MILGAMMA /01146701/ [Concomitant]
  30. PIRACETAM [Concomitant]
  31. CAVINTON [Concomitant]
  32. BROMAZEPAM [Concomitant]
  33. MOMETASONE FUROATE [Concomitant]
  34. MULTI-TABS NEO [Concomitant]

REACTIONS (11)
  - CERVICITIS [None]
  - CYSTITIS [None]
  - EAR INFECTION [None]
  - EXTRASYSTOLES [None]
  - HYPERTENSION [None]
  - INFLUENZA [None]
  - KERATOCONJUNCTIVITIS SICCA [None]
  - LICHEN PLANUS [None]
  - MUSCLE SPASMS [None]
  - OSTEOCHONDROSIS [None]
  - SPINAL OSTEOARTHRITIS [None]
